FAERS Safety Report 5034150-6 (Version None)
Quarter: 2006Q2

REPORT INFORMATION
  Report Type: 
  Country: None (occurrence: None)
  Receive Date: 20060626
  Receipt Date: 20060309
  Transmission Date: 20061013
  Serious: Yes (Hospitalization)
  Sender: FDA-Public Use
  Company Number: JP-SP-2006-00768

PATIENT
  Age: 71 Year
  Sex: Male

DRUGS (1)
  1. IMMUCYST [Suspect]
     Indication: CARCINOMA IN SITU OF BLADDER
     Dosage: TOTAL DOSE : 486 - 567 MG (6-7 INSTILLATIONS)
     Route: 043
     Dates: start: 20050809, end: 20051001

REACTIONS (5)
  - ARTHRITIS [None]
  - CONJUNCTIVITIS [None]
  - HYPERTONIC BLADDER [None]
  - PYREXIA [None]
  - REITER'S SYNDROME [None]
